FAERS Safety Report 6285866-5 (Version None)
Quarter: 2009Q3

REPORT INFORMATION
  Report Type: 
  Country: None (occurrence: None)
  Receive Date: 20090724
  Receipt Date: 20090710
  Transmission Date: 20100115
  Serious: Yes (Life-Threatening)
  Sender: FDA-Public Use
  Company Number: IDA-00229

PATIENT
  Age: 38 Year
  Sex: Female

DRUGS (4)
  1. PROPRANOLOL [Suspect]
     Dosage: UNK
  2. CARBAMAZEPINE [Suspect]
  3. MEPROBAMATE [Suspect]
     Dosage: UNK
  4. HYDROXYZINE [Suspect]

REACTIONS (3)
  - CARDIOVASCULAR DISORDER [None]
  - DRUG TOXICITY [None]
  - INTESTINAL INFARCTION [None]
